FAERS Safety Report 8042855-8 (Version None)
Quarter: 2012Q1

REPORT INFORMATION
  Report Type: 
  Country: None (occurrence: None)
  Receive Date: 20120112
  Receipt Date: 20120109
  Transmission Date: 20120608
  Serious: Yes (Other)
  Sender: FDA-Public Use
  Company Number: US-PFIZER INC-2012000507

PATIENT
  Sex: Female
  Weight: 49.887 kg

DRUGS (10)
  1. CHANTIX [Suspect]
     Dosage: UNK
     Route: 048
     Dates: start: 20120101, end: 20120101
  2. VICODIN [Concomitant]
     Dosage: UNK
  3. DIAZEPAM [Concomitant]
     Dosage: UNK
  4. SOMA [Concomitant]
     Indication: MUSCLE RELAXANT THERAPY
  5. CHANTIX [Suspect]
     Dosage: 1 MG, 2X/DAY
     Route: 048
     Dates: start: 20120101
  6. CLONAZEPAM [Concomitant]
     Indication: INSOMNIA
     Dosage: UNK, ONCE AT NIGHT
  7. SOMA [Concomitant]
     Indication: FIBROMYALGIA
     Dosage: UNK
  8. TEMAZEPAM [Concomitant]
     Indication: SLEEP DISORDER
     Dosage: UNK
  9. CHANTIX [Suspect]
     Indication: SMOKING CESSATION THERAPY
     Dosage: 0.5 MG, 1X/DAY
     Route: 048
     Dates: start: 20111223, end: 20120101
  10. KEPPRA [Concomitant]
     Indication: EPILEPSY
     Dosage: UNK

REACTIONS (7)
  - ANGER [None]
  - AGITATION [None]
  - PAIN [None]
  - DEPRESSION [None]
  - EMOTIONAL DISORDER [None]
  - FLATULENCE [None]
  - ANXIETY [None]
